FAERS Safety Report 9796435 (Version 2)
Quarter: 2014Q1

REPORT INFORMATION
  Report Type: Spontaneous
  Country: US (occurrence: US)
  Receive Date: 20140103
  Receipt Date: 20140117
  Transmission Date: 20141002
  Serious: Yes (Death, Life-Threatening, Hospitalization, Disabling, Other)
  Sender: FDA-Public Use
  Company Number: US-009507513-1401USA000655

PATIENT
  Sex: Male
  Weight: 90.25 kg

DRUGS (2)
  1. JANUVIA [Suspect]
     Dosage: UNK
     Route: 048
     Dates: start: 20090430, end: 20090930
  2. JANUMET [Suspect]
     Dosage: UNK
     Route: 048
     Dates: start: 20090702, end: 20090903

REACTIONS (11)
  - Pancreatic carcinoma metastatic [Fatal]
  - Abdominal pain upper [Unknown]
  - Type V hyperlipidaemia [Not Recovered/Not Resolved]
  - Microcytic anaemia [Unknown]
  - Pulmonary embolism [Unknown]
  - Metastases to abdominal wall [Unknown]
  - Metastases to liver [Unknown]
  - Metastases to spleen [Unknown]
  - Osteoarthritis [Unknown]
  - Hiatus hernia [Unknown]
  - Faeces discoloured [Unknown]
